FAERS Safety Report 4508909-5 (Version None)
Quarter: 2004Q4

REPORT INFORMATION
  Report Type: 
  Country: None (occurrence: None)
  Receive Date: 20041123
  Receipt Date: 20041116
  Transmission Date: 20050328
  Serious: Yes (Death)
  Sender: FDA-Public Use
  Company Number: US-GLAXOSMITHKLINE-A0534336A

PATIENT
  Age: 54 Year
  Sex: Female

DRUGS (4)
  1. LAMICTAL [Suspect]
     Route: 048
     Dates: start: 20041019
  2. CELEBREX [Concomitant]
  3. NORVASC [Concomitant]
  4. PREDNISONE [Concomitant]

REACTIONS (2)
  - DEATH [None]
  - SUDDEN DEATH [None]
